FAERS Safety Report 8137718-3 (Version None)
Quarter: 2012Q1

REPORT INFORMATION
  Report Type: 
  Country: None (occurrence: None)
  Receive Date: 20120215
  Receipt Date: 20120215
  Transmission Date: 20120608
  Serious: No
  Sender: FDA-Public Use
  Company Number: US-PFIZER INC-2011313447

PATIENT
  Sex: Male
  Weight: 95.238 kg

DRUGS (4)
  1. DESMOPRESSIN [Concomitant]
     Dosage: UNK
  2. HYDROCORTISONE [Concomitant]
     Dosage: UNK
  3. LEVOTHYROXINE [Concomitant]
     Dosage: UNK
  4. ADVIL PM [Suspect]
     Indication: SLEEP DISORDER
     Dosage: 2 DF, 1X/DAY
     Dates: start: 20090101

REACTIONS (1)
  - SWELLING FACE [None]
